FAERS Safety Report 9911748 (Version 1)
Quarter: 2014Q1

REPORT INFORMATION
  Report Type: Report from Study
  Country: IN (occurrence: IN)
  Receive Date: 20140219
  Receipt Date: 20140219
  Transmission Date: 20141002
  Serious: Yes (Death)
  Sender: FDA-Public Use
  Company Number: PHHY2014IN020577

PATIENT
  Age: 65 Year
  Sex: Male

DRUGS (1)
  1. EXELON PATCH [Suspect]
     Indication: DEMENTIA
     Dosage: 5CM (4.6MG/24HOURS)/DAY
     Route: 062
     Dates: start: 20140118

REACTIONS (1)
  - Disease progression [Fatal]
